FAERS Safety Report 6211788-1 (Version None)
Quarter: 2009Q2

REPORT INFORMATION
  Report Type: 
  Country: None (occurrence: None)
  Receive Date: 20090528
  Receipt Date: 20090520
  Transmission Date: 20091009
  Serious: Yes (Death)
  Sender: FDA-Public Use
  Company Number: GXKR2009GB06026

PATIENT
  Age: 33 Year
  Sex: Male
  Weight: 125 kg

DRUGS (4)
  1. LAMOTRIGINE (NGX) (LAMOTRIGINE) [Suspect]
  2. FLUTICASONE PROPIONATE [Suspect]
  3. OXCARBAZEPINE [Suspect]
  4. SALBUTAMOL (SALBUTAMOL) [Suspect]

REACTIONS (1)
  - CARDIOMYOPATHY [None]
